FAERS Safety Report 4924704-7 (Version None)
Quarter: 2006Q1

REPORT INFORMATION
  Report Type: 
  Country: None (occurrence: None)
  Receive Date: 20060222
  Receipt Date: 20060209
  Transmission Date: 20060701
  Serious: Yes (Life-Threatening, Hospitalization)
  Sender: FDA-Public Use
  Company Number: US016654

PATIENT
  Age: 71 Year
  Sex: Female

DRUGS (2)
  1. VIGIL [Suspect]
     Indication: HYPOPNOEA
     Dosage: 100 MG, ORAL
     Route: 048
     Dates: start: 20051116, end: 20051206
  2. VIGIL [Suspect]
     Indication: SLEEP APNOEA SYNDROME
     Dosage: 100 MG, ORAL
     Route: 048
     Dates: start: 20051116, end: 20051206

REACTIONS (11)
  - BLOOD PH INCREASED [None]
  - CARDIOGENIC SHOCK [None]
  - DEEP VEIN THROMBOSIS [None]
  - DILATATION ATRIAL [None]
  - DILATATION VENTRICULAR [None]
  - INTRACARDIAC THROMBUS [None]
  - OXYGEN SATURATION DECREASED [None]
  - PCO2 INCREASED [None]
  - PO2 DECREASED [None]
  - PULMONARY EMBOLISM [None]
  - VENTRICULAR DYSKINESIA [None]
